FAERS Safety Report 24957590 (Version 1)
Quarter: 2025Q1

REPORT INFORMATION
  Report Type: Spontaneous
  Country: BE (occurrence: BE)
  Receive Date: 20250212
  Receipt Date: 20250212
  Transmission Date: 20250409
  Serious: Yes (Death)
  Sender: JOHNSON AND JOHNSON
  Company Number: None

PATIENT
  Age: 86 Year
  Sex: Male
  Weight: 96 kg

DRUGS (9)
  1. INVOKANA [Suspect]
     Active Substance: CANAGLIFLOZIN
     Indication: Type 2 diabetes mellitus
     Dosage: 1 CP 1X/JOUR 8H?D?BUT? AVANT LE 8/6/2023 AU MOINS
     Route: 048
     Dates: end: 20230717
  2. BENERVA 300 MG [Concomitant]
     Indication: Product used for unknown indication
     Dosage: ? MIDI
     Dates: end: 20231114
  3. BISOPROLOL [Concomitant]
     Active Substance: BISOPROLOL
     Indication: Product used for unknown indication
     Dosage: ? 8H
  4. Burinex 1 MG [Concomitant]
     Indication: Product used for unknown indication
     Dosage: ? 8H
  5. Januvia 25 MG [Concomitant]
     Indication: Product used for unknown indication
     Dosage: ? 8H
  6. LIPITOR [Concomitant]
     Active Substance: ATORVASTATIN CALCIUM
     Indication: Product used for unknown indication
     Dosage: ? 18H
  7. Tamsulosine 0,4 MG [Concomitant]
     Indication: Product used for unknown indication
     Dosage: ? 20H
     Dates: end: 20230612
  8. SILODOSIN [Concomitant]
     Active Substance: SILODOSIN
     Indication: Product used for unknown indication
     Dosage: ? 20H
     Dates: start: 20230612
  9. TRAZODONE [Concomitant]
     Active Substance: TRAZODONE HYDROCHLORIDE
     Indication: Product used for unknown indication
     Dosage: ? 20H

REACTIONS (7)
  - Fournier^s gangrene [Fatal]
  - Scrotal oedema [Fatal]
  - Orchitis [Fatal]
  - Prostatitis [Fatal]
  - Scrotal ulcer [Fatal]
  - Scrotal erythema [Fatal]
  - Pyelonephritis [Fatal]
